FAERS Safety Report 8495450-0 (Version None)
Quarter: 2012Q3

REPORT INFORMATION
  Report Type: 
  Country: None (occurrence: None)
  Receive Date: 20120709
  Receipt Date: 20120703
  Transmission Date: 20120928
  Serious: Yes (Other)
  Sender: FDA-Public Use
  Company Number: MX-PFIZER INC-2012134844

PATIENT
  Age: 58 Year
  Sex: Female
  Weight: 85 kg

DRUGS (8)
  1. OMEPRAZOLE (PRISOLEC) [Concomitant]
     Indication: GASTRITIS
     Dosage: 20MG DAILY
     Route: 048
     Dates: start: 20020101
  2. CLONAZEPAM [Concomitant]
     Indication: NERVOUSNESS
     Dosage: 2MG DAILY
     Route: 060
     Dates: start: 20080308
  3. CLONAZEPAM [Concomitant]
     Indication: INSOMNIA
  4. LYRICA [Suspect]
     Indication: ARTHRALGIA
     Dosage: 75 MG, 1X/DAY
     Route: 048
     Dates: start: 20120301
  5. KETOCONAZOLE [Suspect]
     Indication: DANDRUFF
     Dosage: UNK
     Route: 003
  6. CISAPRIDE [Concomitant]
     Indication: DYSPEPSIA
     Dosage: 10 MG, 3X/DAY
     Route: 048
     Dates: start: 20090101
  7. RHODIOLA ROSEA [Concomitant]
     Indication: DEPRESSION
     Dosage: 340 MG, 3X/DAY
     Route: 048
     Dates: start: 20080101
  8. DULCOLAX [Concomitant]
     Indication: CONSTIPATION
     Dosage: 5 MG DAILY
     Route: 048
     Dates: start: 20080101

REACTIONS (8)
  - BLISTER [None]
  - DANDRUFF [None]
  - FUNGAL INFECTION [None]
  - DERMATITIS [None]
  - SKIN ULCER [None]
  - PIGMENTATION DISORDER [None]
  - SKIN EXFOLIATION [None]
  - PRURITUS [None]
